FAERS Safety Report 8771029 (Version 2)
Quarter: 2012Q4

REPORT INFORMATION
  Report Type: 
  Country: DE (occurrence: DE)
  Receive Date: 20120906
  Receipt Date: 20121010
  Transmission Date: 20130627
  Serious: Yes (Other)
  Sender: FDA-Public Use
  Company Number: DE-SANOFI-AVENTIS-2012SA063687

PATIENT
  Age: 69 Year
  Sex: Male
  Weight: 91 kg

DRUGS (3)
  1. MULTAQ [Suspect]
     Indication: ARRHYTHMIA ABSOLUTA
     Route: 048
     Dates: start: 20110107
  2. BELOC ZOK [Concomitant]
     Indication: DRUG USE FOR UNKNOWN INDICATION
     Route: 048
  3. ACETYLSALICYLIC ACID [Concomitant]
     Indication: DRUG USE FOR UNKNOWN INDICATION
     Route: 048

REACTIONS (2)
  - Glomerular filtration rate decreased [Unknown]
  - Blood creatinine increased [Unknown]
